FAERS Safety Report 4365670-5 (Version None)
Quarter: 2004Q2

REPORT INFORMATION
  Report Type: 
  Country: None (occurrence: None)
  Receive Date: 20040521
  Receipt Date: 20040504
  Transmission Date: 20050107
  Serious: Yes (Life-Threatening, Hospitalization)
  Sender: FDA-Public Use
  Company Number: FR_040403996

PATIENT
  Age: 8 Hour
  Sex: Female
  Weight: 3 kg

DRUGS (1)
  1. HUMALOG [Suspect]

REACTIONS (3)
  - DRUG EXPOSURE DURING PREGNANCY [None]
  - NEONATAL RESPIRATORY ARREST [None]
  - PREMATURE BABY [None]
